FAERS Safety Report 6125156-4 (Version None)
Quarter: 2009Q1

REPORT INFORMATION
  Report Type: 
  Country: None (occurrence: None)
  Receive Date: 20090316
  Receipt Date: 20090303
  Transmission Date: 20090719
  Serious: Yes (Other)
  Sender: FDA-Public Use
  Company Number: 238945J08USA

PATIENT
  Age: 52 Year
  Sex: Male
  Weight: 104 kg

DRUGS (6)
  1. REBIF [Suspect]
     Indication: MULTIPLE SCLEROSIS
     Dosage: 44 MCG, 3 IN 1 WEEKS, SUBCUTANEOUS
     Route: 058
     Dates: start: 20030401
  2. ADVIL [Concomitant]
  3. BENICAR [Concomitant]
  4. METFORMIN HCL [Concomitant]
  5. JANUVIA (ORAL BLOOD GLUCOSE LOWERING DRUGS) [Concomitant]
  6. CELEBREX [Concomitant]

REACTIONS (4)
  - FALL [None]
  - JOINT INJURY [None]
  - JOINT LOCK [None]
  - VARICOSE VEIN [None]
